FAERS Safety Report 4696523-0 (Version None)
Quarter: 2005Q2

REPORT INFORMATION
  Report Type: 
  Country: None (occurrence: None)
  Receive Date: 20050621
  Receipt Date: 20050616
  Transmission Date: 20051028
  Serious: Yes (Other)
  Sender: FDA-Public Use
  Company Number: US-MERCK-0506USA02703

PATIENT
  Sex: Male

DRUGS (2)
  1. VIOXX [Suspect]
     Indication: RHEUMATOID ARTHRITIS
     Route: 048
     Dates: start: 20010101, end: 20030201
  2. VIOXX [Suspect]
     Route: 048
     Dates: start: 20040801, end: 20040101

REACTIONS (2)
  - CARDIAC DISORDER [None]
  - PRESCRIBED OVERDOSE [None]
